FAERS Safety Report 21980133 (Version 1)
Quarter: 2023Q1

REPORT INFORMATION
  Report Type: Spontaneous
  Country: AU (occurrence: AU)
  Receive Date: 20230210
  Receipt Date: 20230210
  Transmission Date: 20230417
  Serious: Yes (Other)
  Sender: FDA-Public Use
  Company Number: AU-KARYOPHARM-2022KPT001616

PATIENT
  Age: 65 Year
  Sex: Female

DRUGS (3)
  1. XPOVIO [Suspect]
     Active Substance: SELINEXOR
     Indication: Plasma cell myeloma
     Dosage: 60 MG, WEEKLY
  2. XPOVIO [Suspect]
     Active Substance: SELINEXOR
     Dosage: 60 MG, WEEKLY
     Dates: end: 20221103
  3. XPOVIO [Suspect]
     Active Substance: SELINEXOR
     Dosage: 60 MG, WEEKLY
     Dates: start: 20221119, end: 202212

REACTIONS (9)
  - Cerebrovascular accident [Unknown]
  - Liver function test abnormal [Unknown]
  - Coronavirus infection [Unknown]
  - Infection [Unknown]
  - Nausea [Unknown]
  - Asthenia [Unknown]
  - Thrombocytopenia [Unknown]
  - Delirium [Unknown]
  - Weight decreased [Unknown]

NARRATIVE: CASE EVENT DATE: 20220101
